FAERS Safety Report 16844840 (Version 2)
Quarter: 2019Q4

REPORT INFORMATION
  Report Type: Spontaneous
  Country: US (occurrence: US)
  Receive Date: 20190924
  Receipt Date: 20191127
  Transmission Date: 20200122
  Serious: No
  Sender: FDA-Public Use
  Company Number: US-PFIZER INC-2019406832

PATIENT
  Age: 55 Year
  Sex: Female
  Weight: 65.77 kg

DRUGS (3)
  1. IBRANCE [Suspect]
     Active Substance: PALBOCICLIB
     Indication: BREAST CANCER RECURRENT
     Dosage: 100 MG, CYCLIC (ONCE DAILY, 3 WEEKS ON AND LAST WEEK OF MONTH IS OFF)
     Route: 048
     Dates: start: 20190805, end: 20190826
  2. IBRANCE [Suspect]
     Active Substance: PALBOCICLIB
     Dosage: 100 MG, CYCLIC
     Dates: start: 20190903
  3. FEMARA [Concomitant]
     Active Substance: LETROZOLE
     Indication: BREAST CANCER
     Dosage: 2.5 MG, 1X/DAY
     Route: 048
     Dates: start: 20190610

REACTIONS (2)
  - Fatigue [Recovering/Resolving]
  - Sluggishness [Recovering/Resolving]
